FAERS Safety Report 5501597-0 (Version None)
Quarter: 2007Q4

REPORT INFORMATION
  Report Type: 
  Country: None (occurrence: None)
  Receive Date: 20071030
  Receipt Date: 20071022
  Transmission Date: 20080405
  Serious: Yes (Hospitalization)
  Sender: FDA-Public Use
  Company Number: FR-ELI_LILLY_AND_COMPANY-FR200710001316

PATIENT
  Age: 80 Year
  Sex: Female
  Weight: 54 kg

DRUGS (7)
  1. FORTEO [Suspect]
     Indication: OSTEOPOROSIS
     Dosage: 20 UG, DAILY (1/D)
     Route: 058
     Dates: start: 20070212
  2. PLAVIX [Concomitant]
     Dosage: 1 D/F, DAILY (1/D)
     Route: 048
  3. KARDEGIC [Concomitant]
  4. TAHOR [Concomitant]
     Dosage: 10 MG, DAILY (1/D)
     Route: 048
  5. RISORDAN [Concomitant]
     Dosage: 20 MG, DAILY (1/D)
     Route: 048
  6. SPIROCTAZINE [Concomitant]
     Dosage: 1 D/F, DAILY (1/D)
     Route: 048
  7. TRANDATE [Concomitant]
     Dosage: 2 D/F, DAILY (1/D)
     Route: 048

REACTIONS (1)
  - FEMORAL ARTERIAL STENOSIS [None]
